FAERS Safety Report 25701115 (Version 2)
Quarter: 2025Q3

REPORT INFORMATION
  Report Type: Spontaneous
  Country: US (occurrence: US)
  Receive Date: 20250819
  Receipt Date: 20250915
  Transmission Date: 20251020
  Serious: Yes (Other)
  Sender: SANOFI AVENTIS
  Company Number: US-SA-2025SA243835

PATIENT
  Age: 26 Year
  Sex: Female

DRUGS (4)
  1. DUPIXENT [Suspect]
     Active Substance: DUPILUMAB
     Indication: Chronic rhinosinusitis with nasal polyps
     Dosage: 300 MG, QOW
     Route: 058
     Dates: start: 20241003
  2. CUVITRU [Suspect]
     Active Substance: HUMAN IMMUNOGLOBULIN G
     Indication: Immunodeficiency common variable
  3. Lmx 4 [Concomitant]
  4. LIDOCAINE AND PRILOCAINE [Concomitant]
     Active Substance: LIDOCAINE\PRILOCAINE

REACTIONS (20)
  - Pseudomonas infection [Unknown]
  - Immunodeficiency common variable [Unknown]
  - Fatigue [Unknown]
  - Pain [Unknown]
  - Swelling [Unknown]
  - Nausea [Unknown]
  - Headache [Unknown]
  - Nasal polyps [Recovering/Resolving]
  - Rebound effect [Recovering/Resolving]
  - Staphylococcal infection [Unknown]
  - Streptococcal infection [Unknown]
  - Fungal infection [Unknown]
  - Illness [Unknown]
  - Pruritus [Unknown]
  - Erythema [Unknown]
  - Hypersensitivity [Unknown]
  - Injection site erythema [Unknown]
  - Injection site swelling [Unknown]
  - Injection site pruritus [Unknown]
  - Product dose omission in error [Unknown]

NARRATIVE: CASE EVENT DATE: 20250101
